FAERS Safety Report 9397412 (Version 1)
Quarter: 2013Q3

REPORT INFORMATION
  Report Type: Spontaneous
  Country: US (occurrence: None)
  Receive Date: 20130711
  Receipt Date: 20130711
  Transmission Date: 20140515
  Serious: No
  Sender: FDA-Public Use
  Company Number: None

PATIENT
  Age: 59 Year
  Sex: 0

DRUGS (1)
  1. HUMIRA [Suspect]
     Dosage: 40 MG  WEEKLY  SUB-Q
     Route: 058
     Dates: start: 20130522

REACTIONS (1)
  - Arthralgia [None]
